FAERS Safety Report 9826396 (Version 3)
Quarter: 2014Q3

REPORT INFORMATION
  Report Type: Spontaneous
  Country: US (occurrence: US)
  Receive Date: 20140117
  Receipt Date: 20140804
  Transmission Date: 20150326
  Serious: Yes (Other)
  Sender: FDA-Public Use
  Company Number: US-BIOGENIDEC-2014BI003523

PATIENT
  Age: 70 Year
  Sex: Female

DRUGS (29)
  1. IMITREX [Concomitant]
     Active Substance: SUMATRIPTAN\SUMATRIPTAN SUCCINATE
  2. LEVOXYL [Concomitant]
     Active Substance: LEVOTHYROXINE SODIUM
  3. PREMARIN [Concomitant]
     Active Substance: ESTROGENS, CONJUGATED
  4. CYMBALTA [Concomitant]
     Active Substance: DULOXETINE HYDROCHLORIDE
  5. FERROUS SULFATE [Concomitant]
     Active Substance: FERROUS SULFATE\FERROUS SULFATE, DRIED
  6. PREDNISONE. [Concomitant]
     Active Substance: PREDNISONE
  7. DIOVAN [Concomitant]
     Active Substance: VALSARTAN
  8. ENBREL [Concomitant]
     Active Substance: ETANERCEPT
  9. AMPYRA [Concomitant]
     Active Substance: DALFAMPRIDINE
     Dates: start: 20120307, end: 20120314
  10. ASPRIN [Concomitant]
     Active Substance: ASPIRIN
     Dates: start: 20101108
  11. LASIX [Concomitant]
     Active Substance: FUROSEMIDE
  12. MIRAPEX [Concomitant]
     Active Substance: PRAMIPEXOLE DIHYDROCHLORIDE
  13. ARAVA [Concomitant]
     Active Substance: LEFLUNOMIDE
  14. TECFIDERA [Suspect]
     Active Substance: DIMETHYL FUMARATE
     Indication: MULTIPLE SCLEROSIS
     Dates: start: 20130618, end: 20140107
  15. KLONOPIN [Concomitant]
     Active Substance: CLONAZEPAM
  16. CALCIUM [Concomitant]
     Active Substance: CALCIUM
  17. REFRESH [Concomitant]
     Active Substance: UNSPECIFIED INGREDIENT
  18. CIALIS [Concomitant]
     Active Substance: TADALAFIL
  19. FLUORIDE [Concomitant]
     Active Substance: SODIUM FLUORIDE
  20. HYDROCODONE [Concomitant]
     Active Substance: HYDROCODONE
  21. RYTHMOL [Concomitant]
     Active Substance: PROPAFENONE HYDROCHLORIDE
  22. VASOTEC [Concomitant]
     Active Substance: ENALAPRIL MALEATE
  23. ZOSYN [Concomitant]
     Active Substance: PIPERACILLIN SODIUM\TAZOBACTAM SODIUM
  24. NORVASC [Concomitant]
     Active Substance: AMLODIPINE BESYLATE
  25. CARDIZEM CD [Concomitant]
     Active Substance: DILTIAZEM HYDROCHLORIDE
  26. LYRICA [Concomitant]
     Active Substance: PREGABALIN
  27. METHOTREXATE [Concomitant]
     Active Substance: METHOTREXATE
  28. AMPYRA [Concomitant]
     Active Substance: DALFAMPRIDINE
     Route: 048
     Dates: start: 20120229, end: 20120307
  29. FLEXERIL [Concomitant]
     Active Substance: CYCLOBENZAPRINE HYDROCHLORIDE

REACTIONS (4)
  - Urticaria [Recovered/Resolved]
  - Pruritus generalised [Recovered/Resolved]
  - Dyspnoea [Recovered/Resolved]
  - Anaphylactic reaction [Recovered/Resolved]

NARRATIVE: CASE EVENT DATE: 20140104
